FAERS Safety Report 8482828-4 (Version None)
Quarter: 2012Q3

REPORT INFORMATION
  Report Type: 
  Country: None (occurrence: None)
  Receive Date: 20120702
  Receipt Date: 20120620
  Transmission Date: 20120928
  Serious: No
  Sender: FDA-Public Use
  Company Number: US-ASTRAZENECA-2012SE41771

PATIENT
  Age: 62 Year
  Sex: Female

DRUGS (3)
  1. NEXIUM [Suspect]
     Route: 048
  2. TOPROL-XL [Concomitant]
  3. CRESTOR [Suspect]
     Route: 048

REACTIONS (1)
  - BARRETT'S OESOPHAGUS [None]
